FAERS Safety Report 5327272-3 (Version None)
Quarter: 2007Q2

REPORT INFORMATION
  Report Type: 
  Country: None (occurrence: None)
  Receive Date: 20070517
  Receipt Date: 20070507
  Transmission Date: 20071010
  Serious: Yes (Hospitalization, Disabling)
  Sender: FDA-Public Use
  Company Number: GR-ROCHE-496632

PATIENT
  Sex: Female

DRUGS (17)
  1. BONIVA [Suspect]
     Indication: OSTEOPOROSIS
     Dosage: TABLETS REPORTED AS ^F.C. TABS^.
     Route: 048
     Dates: start: 20061015, end: 20070505
  2. MEDROL [Concomitant]
     Dates: start: 19970101
  3. IDEOS [Concomitant]
  4. ARAVA [Concomitant]
     Dates: start: 20050101
  5. METHOTREXATE [Concomitant]
  6. KINERET [Concomitant]
  7. NEORECORMON [Concomitant]
  8. FRUMIL [Concomitant]
  9. TRACLEER [Concomitant]
  10. ZURCAZOL [Concomitant]
  11. VIAGRA [Concomitant]
  12. ISOPTIN [Concomitant]
  13. PROPAFENONE HYDROCHLORIDE [Concomitant]
  14. FILICINE [Concomitant]
  15. DIGOXIN [Concomitant]
  16. BEGALIN [Concomitant]
  17. FLAGYL [Concomitant]

REACTIONS (1)
  - OSTEONECROSIS [None]
